FAERS Safety Report 19978836 (Version 1)
Quarter: 2021Q4

REPORT INFORMATION
  Report Type: Spontaneous
  Country: GB (occurrence: GB)
  Receive Date: 20211020
  Receipt Date: 20211020
  Transmission Date: 20220303
  Serious: Yes (Hospitalization)
  Sender: FDA-Public Use
  Company Number: 2021A779767

PATIENT
  Age: 80 Year
  Sex: Male
  Weight: 65 kg

DRUGS (11)
  1. OMEPRAZOLE [Suspect]
     Active Substance: OMEPRAZOLE
     Indication: Product used for unknown indication
     Route: 065
     Dates: start: 20200825, end: 20210821
  2. RAMIPRIL [Suspect]
     Active Substance: RAMIPRIL
     Indication: Hypertension
     Route: 048
     Dates: end: 20210630
  3. RAMIPRIL [Suspect]
     Active Substance: RAMIPRIL
     Indication: Prophylaxis
     Route: 048
     Dates: end: 20210630
  4. INCLISIRAN [Suspect]
     Active Substance: INCLISIRAN
     Indication: Disease risk factor
     Route: 058
     Dates: start: 20191009, end: 20191009
  5. INCLISIRAN [Suspect]
     Active Substance: INCLISIRAN
     Indication: Disease risk factor
     Route: 058
     Dates: start: 20200311, end: 20200311
  6. INCLISIRAN [Suspect]
     Active Substance: INCLISIRAN
     Indication: Disease risk factor
     Route: 058
     Dates: start: 20200902, end: 20200902
  7. INCLISIRAN [Suspect]
     Active Substance: INCLISIRAN
     Indication: Disease risk factor
     Route: 058
     Dates: start: 20210310, end: 20210310
  8. ATENOLOL [Concomitant]
     Active Substance: ATENOLOL
  9. ASPIRIN [Concomitant]
     Active Substance: ASPIRIN
  10. ATORVASTATIN [Concomitant]
     Active Substance: ATORVASTATIN
  11. AMLODIPINE [Concomitant]
     Active Substance: AMLODIPINE BESYLATE

REACTIONS (1)
  - Acute kidney injury [Recovering/Resolving]

NARRATIVE: CASE EVENT DATE: 20210630
